FAERS Safety Report 5669213-5 (Version None)
Quarter: 2008Q1

REPORT INFORMATION
  Report Type: 
  Country: None (occurrence: None)
  Receive Date: 20080313
  Receipt Date: 20080313
  Transmission Date: 20080703
  Serious: Yes (Life-Threatening, Hospitalization)
  Sender: FDA-Public Use
  Company Number: None

PATIENT
  Sex: Male
  Weight: 95.2554 kg

DRUGS (2)
  1. ZETIA [Suspect]
     Indication: HEPATITIS
     Dosage: 1 TABLET DAILY BY MOUTN 2 PILLS
     Dates: start: 20080201
  2. ZETIA [Suspect]
     Indication: HEPATOCELLULAR INJURY
     Dosage: 1 TABLET DAILY BY MOUTN 2 PILLS
     Dates: start: 20080201

REACTIONS (6)
  - ABDOMINAL PAIN UPPER [None]
  - CHEST PAIN [None]
  - DYSPEPSIA [None]
  - FAECES PALE [None]
  - HEPATITIS [None]
  - PRURITUS [None]
